FAERS Safety Report 5399641-7 (Version None)
Quarter: 2007Q3

REPORT INFORMATION
  Report Type: 
  Country: None (occurrence: None)
  Receive Date: 20070727
  Receipt Date: 20070717
  Transmission Date: 20080115
  Serious: Yes (Other)
  Sender: FDA-Public Use
  Company Number: US-ABBOTT-07P-163-0374931-00

PATIENT
  Sex: Female
  Weight: 45 kg

DRUGS (4)
  1. HUMIRA [Suspect]
     Indication: RHEUMATOID ARTHRITIS
     Dosage: SYRINGE
     Route: 058
     Dates: start: 20050101, end: 20060901
  2. HUMIRA [Suspect]
     Dosage: PEN
     Route: 058
     Dates: start: 20060901
  3. PREDNISONE [Concomitant]
     Indication: INFLAMMATION
     Route: 048
     Dates: start: 19850101
  4. NAPROXEN [Concomitant]
     Indication: INFLAMMATION
     Route: 048
     Dates: start: 19850101

REACTIONS (5)
  - EMOTIONAL DISTRESS [None]
  - PRURITUS [None]
  - RASH MACULAR [None]
  - RHEUMATOID ARTHRITIS [None]
  - TENDON DISORDER [None]
